FAERS Safety Report 7045014-0 (Version None)
Quarter: 2010Q4

REPORT INFORMATION
  Report Type: 
  Country: None (occurrence: None)
  Receive Date: 20101014
  Receipt Date: 20101006
  Transmission Date: 20110411
  Serious: Yes (Disabling, Other)
  Sender: FDA-Public Use
  Company Number: US-SANOFI-AVENTIS-2010SA061307

PATIENT
  Age: 73 Year
  Sex: Female

DRUGS (16)
  1. MULTAQ [Suspect]
     Indication: ATRIAL FIBRILLATION
     Route: 048
     Dates: start: 20100902, end: 20100910
  2. MULTAQ [Suspect]
     Route: 048
     Dates: start: 20100917, end: 20100918
  3. CLONIDINE [Concomitant]
     Dates: end: 20100901
  4. CLONIDINE [Concomitant]
     Dates: start: 20100901
  5. ATENOLOL [Concomitant]
  6. FUROSEMIDE [Concomitant]
  7. POTASSIUM [Concomitant]
  8. ZETIA [Concomitant]
  9. TERAZOSIN HCL [Concomitant]
  10. INSULIN [Concomitant]
  11. SINGULAIR [Concomitant]
  12. LISINOPRIL AND HYDROCHLOROTHIAZIDE [Concomitant]
  13. LEVOXYL [Concomitant]
  14. COUMADIN [Concomitant]
  15. METFORMIN [Concomitant]
  16. ALBUTEROL [Concomitant]

REACTIONS (4)
  - ABASIA [None]
  - FALL [None]
  - HAND FRACTURE [None]
  - MUSCULAR WEAKNESS [None]
